FAERS Safety Report 21732094 (Version 1)
Quarter: 2022Q4

REPORT INFORMATION
  Report Type: Spontaneous
  Country: ES (occurrence: ES)
  Receive Date: 20221215
  Receipt Date: 20221215
  Transmission Date: 20230113
  Serious: Yes (Other)
  Sender: FDA-Public Use
  Company Number: ES-STRIDES ARCOLAB LIMITED-2022SP016856

PATIENT
  Age: 42 Year
  Sex: Female

DRUGS (6)
  1. CYCLOSPORINE [Suspect]
     Active Substance: CYCLOSPORINE
     Indication: Prophylaxis against graft versus host disease
     Dosage: UNK
     Route: 065
  2. METHOTREXATE [Suspect]
     Active Substance: METHOTREXATE
     Indication: Prophylaxis against graft versus host disease
     Dosage: UNK
     Route: 065
  3. CYCLOPHOSPHAMIDE [Concomitant]
     Active Substance: CYCLOPHOSPHAMIDE
     Indication: Bone marrow conditioning regimen
     Dosage: UNK, AS CONDITIONING REGIMEN
     Route: 065
  4. BUSULFAN [Concomitant]
     Active Substance: BUSULFAN
     Indication: Bone marrow conditioning regimen
     Dosage: UNK, AS CONDITIONING REGIMEN
     Route: 065
  5. CYTARABINE [Concomitant]
     Active Substance: CYTARABINE
     Indication: Acute myeloid leukaemia
     Dosage: UNK, CYCLICAL (RECEIVED 2 CYCLES WITH HIGH DOSE (AS CONSOLIDATION THERAPY)
     Route: 065
  6. MIDOSTAURIN [Concomitant]
     Active Substance: MIDOSTAURIN
     Indication: Acute myeloid leukaemia
     Dosage: UNK, CYCLICAL (RECEIVED 2 CYCLES WITH HIGH DOSE (AS CONSOLIDATION THERAPY)
     Route: 065

REACTIONS (3)
  - Pancreatic failure [Recovered/Resolved]
  - Pancreatic atrophy [Not Recovered/Not Resolved]
  - Acute graft versus host disease in skin [Recovered/Resolved]
